FAERS Safety Report 5688180-1 (Version None)
Quarter: 2008Q1

REPORT INFORMATION
  Report Type: 
  Country: None (occurrence: None)
  Receive Date: 20080327
  Receipt Date: 20080312
  Transmission Date: 20080703
  Serious: Yes (Other)
  Sender: FDA-Public Use
  Company Number: 2008TJ0051FU1

PATIENT
  Age: 15 Year
  Sex: Female

DRUGS (1)
  1. TWINJECT (EPINEPHRINE) [Suspect]
     Indication: ANAPHYLACTIC REACTION
     Dosage: 0.3 MG, SUBCUTANEOUS/INTRAMUSCULAR
     Route: 058
     Dates: start: 20080220, end: 20080220

REACTIONS (3)
  - DEVICE BREAKAGE [None]
  - DRUG EFFECT DECREASED [None]
  - PHARMACEUTICAL PRODUCT COMPLAINT [None]
